FAERS Safety Report 16760766 (Version 1)
Quarter: 2019Q3

REPORT INFORMATION
  Report Type: Spontaneous
  Country: FR (occurrence: FR)
  Receive Date: 20190830
  Receipt Date: 20190830
  Transmission Date: 20191005
  Serious: Yes (Other)
  Sender: FDA-Public Use
  Company Number: FR-PROVELL PHARMACEUTICALS-2073870

PATIENT
  Age: 62 Year
  Sex: Female

DRUGS (3)
  1. EUTHYROX [Suspect]
     Active Substance: LEVOTHYROXINE SODIUM
     Dates: start: 201908
  2. EUTHYROX [Suspect]
     Active Substance: LEVOTHYROXINE SODIUM
     Indication: POST PROCEDURAL HYPOTHYROIDISM
     Dates: start: 20181017, end: 2018
  3. EUTHYROX [Suspect]
     Active Substance: LEVOTHYROXINE SODIUM
     Dates: start: 2018, end: 2019

REACTIONS (16)
  - Suicidal ideation [None]
  - Depressed mood [None]
  - Nausea [None]
  - Impatience [None]
  - Aggression [None]
  - Feeling abnormal [None]
  - Myalgia [None]
  - Weight increased [None]
  - Fatigue [None]
  - Sneezing [None]
  - Vertigo [None]
  - Multiple allergies [None]
  - Muscle spasms [None]
  - Headache [None]
  - Tachycardia [None]
  - Blood thyroid stimulating hormone abnormal [None]

NARRATIVE: CASE EVENT DATE: 2018
